FAERS Safety Report 8765147 (Version 2)
Quarter: 2012Q4

REPORT INFORMATION
  Report Type: 
  Country: JP (occurrence: JP)
  Receive Date: 20120903
  Receipt Date: 20121229
  Transmission Date: 20130627
  Serious: Yes (Hospitalization, Other)
  Sender: FDA-Public Use
  Company Number: JP-009507513-1208JPN011051

PATIENT
  Age: 62 Year
  Sex: Female
  Weight: 49 kg

DRUGS (14)
  1. REBETOL [Suspect]
     Indication: CHRONIC HEPATITIS C
     Dosage: 600 mg, qd
     Route: 048
     Dates: start: 20120218, end: 20120316
  2. REBETOL [Suspect]
     Dosage: 400 mg, qd
     Route: 048
     Dates: start: 20120317, end: 20120427
  3. REBETOL [Suspect]
     Dosage: 200 mg, qd
     Route: 048
     Dates: start: 20120428, end: 20120525
  4. REBETOL [Suspect]
     Dosage: 400 mg, qd
     Route: 048
     Dates: start: 20120526, end: 20120608
  5. REBETOL [Suspect]
     Dosage: 600 mg, qd
     Route: 048
     Dates: start: 20120609, end: 20120730
  6. PEGINTRON [Suspect]
     Indication: CHRONIC HEPATITIS C
     Dosage: 1.5 Microgram per kilogram, qw
     Route: 058
     Dates: start: 20120218, end: 20120728
  7. TELAVIC [Suspect]
     Indication: CHRONIC HEPATITIS C
     Dosage: 1500 mg, qd
     Route: 048
     Dates: start: 20120218, end: 20120512
  8. SEDEKOPAN [Concomitant]
     Indication: PROPHYLAXIS
     Dosage: 1 mg, qd
     Route: 048
     Dates: start: 20120310, end: 20120804
  9. PARIET [Concomitant]
     Indication: PROPHYLAXIS
     Dosage: 10 mg, qd,formulation: POR
     Route: 048
  10. PROMAC (POLAPREZINC) [Concomitant]
     Indication: PROPHYLAXIS
     Dosage: 1 g, qd,formulation: por
     Route: 048
  11. CLARITIN REDITABS TABLETS 10 MG [Concomitant]
     Indication: PROPHYLAXIS
     Dosage: 10 mg, qd,formulation: POR
     Route: 048
     Dates: start: 20120526, end: 20120804
  12. CELESTAMINE (BETAMETHASONE (+) DEXCHLORPHENIRAMINE MALEATE) [Concomitant]
     Indication: PROPHYLAXIS
     Dosage: 3 DF, UNK
     Route: 048
     Dates: start: 20120407, end: 20120512
  13. CELESTAMINE (BETAMETHASONE (+) DEXCHLORPHENIRAMINE MALEATE) [Concomitant]
     Dosage: 6 UNK, UNK
     Route: 048
     Dates: end: 20120525
  14. ALLOPURINOL [Concomitant]
     Indication: PROPHYLAXIS
     Dosage: 200 mg, qd
     Route: 048

REACTIONS (2)
  - Pneumonia [Recovered/Resolved]
  - White blood cell count decreased [Recovered/Resolved]
